FAERS Safety Report 4349910-4 (Version None)
Quarter: 2004Q2

REPORT INFORMATION
  Report Type: 
  Country: None (occurrence: None)
  Receive Date: 20040428
  Receipt Date: 20040428
  Transmission Date: 20050107
  Serious: Yes (Death)
  Sender: FDA-Public Use
  Company Number: None

PATIENT
  Sex: Female
  Weight: 37 kg

DRUGS (6)
  1. PROPOFOL [Suspect]
     Indication: INDUCTION AND MAINTENANCE OF ANAESTHESIA
     Dosage: 200MCG/KG/ PER MIN INTRAVENOUS
     Route: 042
     Dates: start: 20040217, end: 20040219
  2. CLINDAMYCIN HCL [Concomitant]
  3. UNASYN [Concomitant]
  4. RANITIDINE [Concomitant]
  5. VANCOMYCIN [Concomitant]
  6. CEFOTAXIME [Concomitant]

REACTIONS (26)
  - ACUTE RESPIRATORY DISTRESS SYNDROME [None]
  - ARRHYTHMIA [None]
  - BLOOD BICARBONATE DECREASED [None]
  - BLOOD CREATININE INCREASED [None]
  - BLOOD GASES ABNORMAL [None]
  - BLOOD LACTIC ACID INCREASED [None]
  - BLOOD PHOSPHORUS INCREASED [None]
  - BLOOD POTASSIUM DECREASED [None]
  - BRADYARRHYTHMIA [None]
  - CARDIO-RESPIRATORY ARREST [None]
  - CHROMATURIA [None]
  - HAEMATOCRIT INCREASED [None]
  - HAEMODIALYSIS [None]
  - HYPERKALAEMIA [None]
  - HYPOTENSION [None]
  - HYPOVOLAEMIA [None]
  - HYPOXIA [None]
  - METABOLIC ACIDOSIS [None]
  - PLEURAL EFFUSION [None]
  - PNEUMONIA ASPIRATION [None]
  - PULMONARY OEDEMA [None]
  - RENAL FAILURE ACUTE [None]
  - RHABDOMYOLYSIS [None]
  - SEPSIS [None]
  - UROSEPSIS [None]
  - WHITE BLOOD CELL COUNT INCREASED [None]
